FAERS Safety Report 14446873 (Version 1)
Quarter: 2018Q1

REPORT INFORMATION
  Report Type: Spontaneous
  Country: ES (occurrence: ES)
  Receive Date: 20180126
  Receipt Date: 20180126
  Transmission Date: 20180509
  Serious: Yes (Life-Threatening, Hospitalization, Other)
  Sender: FDA-Public Use
  Company Number: ES-BAYER-2018-005062

PATIENT
  Age: 37 Year
  Sex: Female
  Weight: 55 kg

DRUGS (1)
  1. JAYDESS [Suspect]
     Active Substance: LEVONORGESTREL
     Dosage: 14 MCG/24HR, CONT
     Route: 015
     Dates: start: 20170927

REACTIONS (5)
  - Haemorrhagic anaemia [Unknown]
  - Ectopic pregnancy with contraceptive device [Unknown]
  - Drug ineffective [Unknown]
  - Peritoneal haemorrhage [Unknown]
  - Abortion of ectopic pregnancy [Unknown]

NARRATIVE: CASE EVENT DATE: 20180103
